APPROVED DRUG PRODUCT: NOREPINEPHRINE BITARTRATE
Active Ingredient: NOREPINEPHRINE BITARTRATE
Strength: EQ 1MG BASE/ML
Dosage Form/Route: INJECTABLE;INJECTION
Application: A216341 | Product #001
Applicant: ZYDUS PHARMACEUTICALS USA INC
Approved: Jul 19, 2022 | RLD: No | RS: No | Type: DISCN